FAERS Safety Report 16642934 (Version 1)
Quarter: 2019Q3

REPORT INFORMATION
  Report Type: Spontaneous
  Country: US (occurrence: US)
  Receive Date: 20190728
  Receipt Date: 20190728
  Transmission Date: 20191004
  Serious: Yes (Disabling)
  Sender: FDA-Public Use
  Company Number: None

PATIENT
  Age: 23 Year
  Sex: Female
  Weight: 95.25 kg

DRUGS (6)
  1. AIMOVIG [Concomitant]
     Active Substance: ERENUMAB-AOOE
  2. HYDROXINE [Concomitant]
     Active Substance: HYDROXYZINE HYDROCHLORIDE
  3. MIRENA [Suspect]
     Active Substance: LEVONORGESTREL
  4. ZOLOFT [Concomitant]
     Active Substance: SERTRALINE HYDROCHLORIDE
  5. GABAPENTIN. [Concomitant]
     Active Substance: GABAPENTIN
  6. VITAMIN D [Concomitant]
     Active Substance: VITAMIN D NOS

REACTIONS (4)
  - Optic nerve compression [None]
  - Papilloedema [None]
  - Migraine [None]
  - Idiopathic intracranial hypertension [None]

NARRATIVE: CASE EVENT DATE: 20190703
